FAERS Safety Report 9512014 (Version 1)
Quarter: 2013Q3

REPORT INFORMATION
  Report Type: Spontaneous
  Country: US (occurrence: US)
  Receive Date: 20130910
  Receipt Date: 20130910
  Transmission Date: 20140515
  Serious: Yes (Hospitalization)
  Sender: FDA-Public Use
  Company Number: PHEH2013US018911

PATIENT
  Age: 63 Year
  Sex: Female

DRUGS (1)
  1. LAMISIL [Suspect]
     Indication: ONYCHOMYCOSIS
     Dosage: UNK UKN, UNK
     Route: 048

REACTIONS (4)
  - Speech disorder [Unknown]
  - Dyspnoea [Unknown]
  - Urticaria [Unknown]
  - Rash [Unknown]
